FAERS Safety Report 18445395 (Version 1)
Quarter: 2020Q4

REPORT INFORMATION
  Report Type: Other
  Country: US (occurrence: ES)
  Receive Date: 20201030
  Receipt Date: 20201030
  Transmission Date: 20210114
  Serious: Yes (Hospitalization, Other)
  Sender: FDA-Public Use
  Company Number: ES-BRECKENRIDGE PHARMACEUTICAL, INC.-2093422

PATIENT
  Age: 64 Year
  Sex: Male

DRUGS (5)
  1. UROLOSIN [Concomitant]
     Active Substance: TAMSULOSIN HYDROCHLORIDE
  2. SIMVASTATIN. [Concomitant]
     Active Substance: SIMVASTATIN
  3. OMEPRAZOLE. [Concomitant]
     Active Substance: OMEPRAZOLE
  4. LEVETIRACETAM. [Suspect]
     Active Substance: LEVETIRACETAM
     Indication: SEIZURE PROPHYLAXIS
  5. NIMODIPINE. [Concomitant]
     Active Substance: NIMODIPINE

REACTIONS (2)
  - Alcohol abuse [None]
  - Behaviour disorder [None]
